FAERS Safety Report 7651048-5 (Version None)
Quarter: 2011Q3

REPORT INFORMATION
  Report Type: 
  Country: None (occurrence: None)
  Receive Date: 20110802
  Receipt Date: 20110720
  Transmission Date: 20111222
  Serious: Yes (Hospitalization)
  Sender: FDA-Public Use
  Company Number: DE-ASTRAZENECA-2011SE43639

PATIENT
  Age: 29607 Day
  Sex: Male
  Weight: 80 kg

DRUGS (14)
  1. CALCIUM ACETATE [Concomitant]
     Indication: MINERAL SUPPLEMENTATION
     Route: 048
  2. ZOFRAN [Concomitant]
     Indication: VOMITING
  3. PREDNISONE [Concomitant]
     Indication: DYSPNOEA
     Route: 055
     Dates: start: 20110707, end: 20110715
  4. PASPERTIN [Concomitant]
     Indication: VOMITING
  5. PANTOPRAZOLE [Concomitant]
     Indication: GASTROINTESTINAL DISORDER
     Route: 048
  6. ZOLPIDEM [Concomitant]
     Indication: INSOMNIA
  7. NOVALGIN [Concomitant]
     Indication: PAIN
     Route: 048
  8. KALIUM RETARD [Concomitant]
     Indication: MINERAL SUPPLEMENTATION
     Route: 048
  9. ERGOCALCIFEROL [Concomitant]
     Indication: VITAMIN SUPPLEMENTATION
     Route: 048
  10. LEVOTHYROXINE SODIUM [Concomitant]
     Indication: HYPOTHYROIDISM
     Route: 048
  11. IRESSA [Suspect]
     Indication: NON-SMALL CELL LUNG CANCER
     Route: 048
     Dates: start: 20101005, end: 20110718
  12. TORSEMIDE [Concomitant]
     Indication: DIURETIC THERAPY
     Route: 048
     Dates: end: 20110718
  13. MG VERLA T [Concomitant]
     Indication: MINERAL SUPPLEMENTATION
     Route: 048
     Dates: end: 20110718
  14. FENTORA [Concomitant]
     Indication: PAIN

REACTIONS (1)
  - RENAL FAILURE ACUTE [None]
